FAERS Safety Report 12211440 (Version 1)
Quarter: 2016Q1

REPORT INFORMATION
  Report Type: Spontaneous
  Country: US (occurrence: None)
  Receive Date: 20160324
  Receipt Date: 20160324
  Transmission Date: 20160526
  Serious: Yes (Other)
  Sender: FDA-Public Use
  Company Number: None

PATIENT
  Age: 88 Year
  Sex: Male
  Weight: 87.09 kg

DRUGS (10)
  1. ASPRININ [Concomitant]
  2. LOSARTAN. [Concomitant]
     Active Substance: LOSARTAN
  3. CYANOCOBALAMIN. [Concomitant]
     Active Substance: CYANOCOBALAMIN
  4. DOCUSATE [Concomitant]
     Active Substance: DOCUSATE
  5. METOPROLOL. [Concomitant]
     Active Substance: METOPROLOL
  6. OTEZLA [Suspect]
     Active Substance: APREMILAST
     Indication: PSORIASIS
     Dosage: 1 PILL BID ORAL
     Route: 048
     Dates: start: 20160221, end: 20160307
  7. FOLIC ACID. [Concomitant]
     Active Substance: FOLIC ACID
  8. SENNOSIDES. [Concomitant]
     Active Substance: SENNOSIDES
  9. MELOXICAM. [Concomitant]
     Active Substance: MELOXICAM
  10. PYRIDOXINE [Concomitant]
     Active Substance: PYRIDOXINE

REACTIONS (1)
  - Tinnitus [None]

NARRATIVE: CASE EVENT DATE: 20160307
